FAERS Safety Report 9223731 (Version 2)
Quarter: 2013Q2

REPORT INFORMATION
  Report Type: Spontaneous
  Country: US (occurrence: US)
  Receive Date: 20130410
  Receipt Date: 20130617
  Transmission Date: 20140414
  Serious: Yes (Death)
  Sender: FDA-Public Use
  Company Number: US-FRI-1000044113

PATIENT
  Sex: Male

DRUGS (3)
  1. NAMENDA [Suspect]
     Dosage: 5 MG
     Route: 048
  2. NAMENDA [Suspect]
     Dosage: 10 MG
     Route: 048
     Dates: start: 20121114, end: 20121127
  3. NAMENDA [Suspect]
     Dosage: 20 MG
     Route: 048
     Dates: start: 20121128

REACTIONS (1)
  - Cardiac disorder [Fatal]
